FAERS Safety Report 5593970-X (Version None)
Quarter: 2008Q1

REPORT INFORMATION
  Report Type: 
  Country: None (occurrence: None)
  Receive Date: 20080114
  Receipt Date: 20071228
  Transmission Date: 20080703
  Serious: Yes (Hospitalization)
  Sender: FDA-Public Use
  Company Number: 2007JP003800

PATIENT
  Age: 48 Year
  Sex: Female
  Weight: 64 kg

DRUGS (14)
  1. PROGRAF [Suspect]
     Indication: RENAL TRANSPLANT
     Dosage: 4 MG, BID, ORAL; 2 MG, BID, ORAL; 2 MG, BID, ORAL
     Route: 048
     Dates: start: 20031013, end: 20031014
  2. PROGRAF [Suspect]
     Indication: RENAL TRANSPLANT
     Dosage: 4 MG, BID, ORAL; 2 MG, BID, ORAL; 2 MG, BID, ORAL
     Route: 048
     Dates: start: 20031017, end: 20031021
  3. PROGRAF [Suspect]
     Indication: RENAL TRANSPLANT
     Dosage: 4 MG, BID, ORAL; 2 MG, BID, ORAL; 2 MG, BID, ORAL
     Route: 048
     Dates: start: 20031026
  4. PROGRAF [Suspect]
     Indication: RENAL TRANSPLANT
     Dosage: 3 MG, CONTINUOUS, IV DRIP
     Route: 041
     Dates: start: 20031015, end: 20031016
  5. SIMULECT [Concomitant]
  6. CELLCEPT [Concomitant]
  7. SOL MEDROL (METHYLPREDNISOLONE, SUCCINATE SODIUM) [Concomitant]
  8. ALDOMET [Concomitant]
  9. ADALAT [Concomitant]
  10. MUCOSTA (REBAMIPIDE) [Concomitant]
  11. DOXAZOSIN MESYLATE [Concomitant]
  12. MALFA (ALUMINIUM HYDROXIDE GEL) [Concomitant]
  13. ISOFLURANE [Concomitant]
  14. FENTANYL CITRATE [Concomitant]

REACTIONS (14)
  - COMPLICATIONS OF TRANSPLANTED KIDNEY [None]
  - CYTOMEGALOVIRUS INFECTION [None]
  - DISORIENTATION [None]
  - DUODENITIS [None]
  - GRANULOMA [None]
  - HAEMATOCHEZIA [None]
  - HAEMOGLOBIN DECREASED [None]
  - HYPERTENSION [None]
  - PANCREATIC ENZYMES INCREASED [None]
  - PLATELET COUNT DECREASED [None]
  - SMALL INTESTINAL HAEMORRHAGE [None]
  - THROMBOTIC MICROANGIOPATHY [None]
  - TRANSPLANT REJECTION [None]
  - URINE OUTPUT DECREASED [None]
